FAERS Safety Report 8799325 (Version 3)
Quarter: 2013Q2

REPORT INFORMATION
  Report Type: Spontaneous
  Country: JP (occurrence: JP)
  Receive Date: 20120919
  Receipt Date: 20130501
  Transmission Date: 20140414
  Serious: No
  Sender: FDA-Public Use
  Company Number: JP-PFIZER INC-2012224187

PATIENT
  Age: 63 Year
  Sex: 0
  Weight: 43 kg

DRUGS (17)
  1. FOSPHENYTOIN SODIUM [Suspect]
     Indication: EPILEPSY
     Dosage: 900 MG, 1X/DAY
     Route: 042
     Dates: start: 20120814
  2. FOSPHENYTOIN SODIUM [Suspect]
     Dosage: 450 MG, DAILY
     Dates: start: 20120820
  3. FOSPHENYTOIN SODIUM [Suspect]
     Dosage: 600 MG, DAILY
     Dates: start: 20120820
  4. FOSPHENYTOIN SODIUM [Suspect]
     Dosage: 450, MG, DAILY
     Dates: start: 20120828, end: 20120829
  5. FOSPHENYTOIN SODIUM [Suspect]
     Dosage: 375, MG, DAILY
     Dates: start: 20120830, end: 20120831
  6. FOSPHENYTOIN SODIUM [Suspect]
     Dosage: 300,MG, DAILY
     Dates: start: 20120901, end: 20120903
  7. TEGRETOL [Concomitant]
     Dosage: 200 MG, 1X/DAY
     Dates: start: 20120817, end: 20120828
  8. TEGRETOL [Concomitant]
     Dosage: 600 MG
  9. TEGRETOL [Concomitant]
     Dosage: 500 MG, 1X/DAY
     Dates: start: 20120828
  10. DEPAS [Concomitant]
     Dosage: UNK
     Route: 048
  11. TAKEPRON [Concomitant]
     Dosage: UNK
     Route: 048
  12. FOIPAN [Concomitant]
     Dosage: UNK
     Route: 048
  13. UUVELA N [Concomitant]
     Dosage: UNK
     Route: 048
  14. PYRINAZIN [Concomitant]
     Dosage: UNK
  15. METHYCOBAL [Concomitant]
     Dosage: UNK
     Route: 048
  16. ENSURE [Concomitant]
     Dosage: UNK
  17. BIOFERMIN [Concomitant]
     Dosage: UNK

REACTIONS (4)
  - Nystagmus [Recovered/Resolved]
  - Vomiting [Recovered/Resolved]
  - Nausea [Unknown]
  - Ataxia [Recovered/Resolved]
